FAERS Safety Report 8428736-6 (Version None)
Quarter: 2012Q2

REPORT INFORMATION
  Report Type: 
  Country: None (occurrence: None)
  Receive Date: 20120612
  Receipt Date: 20120608
  Transmission Date: 20120825
  Serious: Yes (Other)
  Sender: FDA-Public Use
  Company Number: US-SP-2012-06066

PATIENT
  Sex: Female

DRUGS (1)
  1. TUBERSOL [Suspect]
     Indication: TUBERCULIN TEST
     Route: 065
     Dates: start: 20120209, end: 20120209

REACTIONS (6)
  - PARAESTHESIA [None]
  - RESPIRATORY RATE INCREASED [None]
  - TREMOR [None]
  - PALPITATIONS [None]
  - FEELING ABNORMAL [None]
  - ASTHENIA [None]
